FAERS Safety Report 4810858-X (Version None)
Quarter: 2005Q4

REPORT INFORMATION
  Report Type: 
  Country: None (occurrence: None)
  Receive Date: 20051027
  Receipt Date: 20050906
  Transmission Date: 20060501
  Serious: Yes (Life-Threatening, Hospitalization)
  Sender: FDA-Public Use
  Company Number: JP-SP-2005-01826

PATIENT
  Age: 78 Year
  Sex: Male

DRUGS (5)
  1. IMMUCYST [Suspect]
     Indication: BLADDER CANCER
     Route: 043
     Dates: start: 20050810, end: 20050810
  2. HYDANTOL F (PHENYTOIN, PHENOBARBITAL, CAFFEINE AND SODIUM BENZOATE) [Concomitant]
     Route: 048
  3. FLURBIPROFEN [Concomitant]
     Route: 065
  4. DICLOFENAC SODIUM [Concomitant]
     Route: 054
  5. TAMSULOSIN HCL [Concomitant]
     Route: 048

REACTIONS (2)
  - PYREXIA [None]
  - TUBERCULOSIS [None]
